FAERS Safety Report 14112130 (Version 2)
Quarter: 2017Q4

REPORT INFORMATION
  Report Type: Spontaneous
  Country: US (occurrence: US)
  Receive Date: 20171020
  Receipt Date: 20171031
  Transmission Date: 20180321
  Serious: Yes (Hospitalization)
  Sender: FDA-Public Use
  Company Number: US-INTERCEPT-PMOCA2017001068

PATIENT

DRUGS (2)
  1. OCALIVA [Suspect]
     Active Substance: OBETICHOLIC ACID
     Indication: BILIARY CIRRHOSIS PRIMARY
     Dosage: 5 MG, UNK
     Route: 048
     Dates: start: 20170117, end: 201708
  2. OCALIVA [Suspect]
     Active Substance: OBETICHOLIC ACID
     Dosage: 10 MG, UNK
     Dates: start: 201708, end: 2017

REACTIONS (6)
  - Blood alkaline phosphatase increased [Unknown]
  - Bile duct stenosis [Unknown]
  - Drug ineffective [Unknown]
  - Jaundice [Unknown]
  - Cholelithiasis [Unknown]
  - Blood bilirubin increased [Unknown]
